FAERS Safety Report 14151194 (Version 3)
Quarter: 2019Q4

REPORT INFORMATION
  Report Type: Report from Study
  Country: None (occurrence: IL)
  Receive Date: 20171102
  Receipt Date: 20191011
  Transmission Date: 20200122
  Serious: Yes (Hospitalization)
  Sender: FDA-Public Use
  Company Number: IL-ABBVIE-17K-082-2142536-00

PATIENT
  Sex: Male

DRUGS (4)
  1. DUODOPA [Suspect]
     Active Substance: CARBIDOPA\LEVODOPA
     Indication: PARKINSON^S DISEASE
     Dosage: MORNING DOSE-10ML?CURRENT CONTINUES RATE-3ML/HOUR?CURRENT ED- 1ML
     Route: 050
     Dates: start: 20170827, end: 2017
  2. SINEMET [Concomitant]
     Active Substance: CARBIDOPA\LEVODOPA
     Indication: PRODUCT USED FOR UNKNOWN INDICATION
     Dosage: 1 PILL
  3. DUODOPA [Suspect]
     Active Substance: CARBIDOPA\LEVODOPA
     Dosage: MORNING DOSE 11.5ML?CONTINUOUS DOSE DECREASED  3.1 TO 3.0ML/HOUR?EXTRA DOSE 2.5ML
     Route: 050
  4. DUODOPA [Suspect]
     Active Substance: CARBIDOPA\LEVODOPA
     Dosage: CONTINUOUS DOSE DECREASED  3.1 ML/HOUR
     Route: 050
     Dates: start: 2017

REACTIONS (6)
  - Dyskinesia [Recovering/Resolving]
  - Restlessness [Recovering/Resolving]
  - Dyskinesia [Not Recovered/Not Resolved]
  - Lens dislocation [Recovering/Resolving]
  - Device dislocation [Recovered/Resolved]
  - Asthenia [Not Recovered/Not Resolved]

NARRATIVE: CASE EVENT DATE: 2017
